APPROVED DRUG PRODUCT: RIMADYL
Active Ingredient: CARPROFEN
Strength: 150MG
Dosage Form/Route: TABLET;ORAL
Application: N018550 | Product #003
Applicant: HOFFMANN LA ROCHE INC
Approved: Dec 31, 1987 | RLD: No | RS: No | Type: DISCN